FAERS Safety Report 26155351 (Version 1)
Quarter: 2025Q4

REPORT INFORMATION
  Report Type: Spontaneous
  Country: JP (occurrence: JP)
  Receive Date: 20251215
  Receipt Date: 20251215
  Transmission Date: 20260117
  Serious: Yes (Life-Threatening, Hospitalization, Other)
  Sender: PHARMOBEDIENT CONSULTING, LLC
  Company Number: JP-Pharmobedient-000632

PATIENT
  Age: 58 Year
  Sex: Female
  Weight: 0 kg

DRUGS (2)
  1. TIZANIDINE HYDROCHLORIDE [Suspect]
     Active Substance: TIZANIDINE HYDROCHLORIDE
     Indication: Dental care
  2. MELOXICAM [Suspect]
     Active Substance: MELOXICAM
     Indication: Dental care

REACTIONS (1)
  - Atypical Stevens-Johnson syndrome [Recovering/Resolving]
